FAERS Safety Report 10047677 (Version 1)
Quarter: 2014Q1

REPORT INFORMATION
  Report Type: Spontaneous
  Country: AU (occurrence: AU)
  Receive Date: 20140331
  Receipt Date: 20140331
  Transmission Date: 20141002
  Serious: Yes (Other)
  Sender: FDA-Public Use
  Company Number: AU-PFIZER INC-2014090501

PATIENT
  Age: 82 Year
  Sex: Female

DRUGS (2)
  1. PRISTIQ [Suspect]
     Dosage: 200 MG, UNK
  2. PRISTIQ [Suspect]
     Dosage: 150 MG, UNK

REACTIONS (2)
  - Hallucination [Recovering/Resolving]
  - Dysgeusia [Recovering/Resolving]
